FAERS Safety Report 5690080-8 (Version None)
Quarter: 2008Q1

REPORT INFORMATION
  Report Type: 
  Country: None (occurrence: None)
  Receive Date: 20080331
  Receipt Date: 20080331
  Transmission Date: 20080703
  Serious: Yes (Other)
  Sender: FDA-Public Use
  Company Number: None

PATIENT
  Age: 39 Year
  Sex: Male
  Weight: 97.5234 kg

DRUGS (1)
  1. SINGULAIR [Suspect]
     Indication: MULTIPLE ALLERGIES
     Dosage: 10 MILIGRAMS 1 TIME A DAY PO
     Route: 048
     Dates: start: 20071101, end: 20080327

REACTIONS (4)
  - ANGER [None]
  - ANXIETY [None]
  - DEPRESSION [None]
  - MOOD SWINGS [None]
